FAERS Safety Report 4525165-2 (Version None)
Quarter: 2004Q4

REPORT INFORMATION
  Report Type: 
  Country: None (occurrence: None)
  Receive Date: 20041116
  Receipt Date: 20040720
  Transmission Date: 20050328
  Serious: No
  Sender: FDA-Public Use
  Company Number: S04-USA-04895-01

PATIENT
  Age: 85 Year
  Sex: Female

DRUGS (14)
  1. NAMENDA [Suspect]
     Indication: DEMENTIA
     Dosage: 5 MG QD PO
     Route: 048
     Dates: start: 20040716
  2. ARICEPT [Concomitant]
  3. EFFEXOR [Concomitant]
  4. SYNTHROID [Concomitant]
  5. MICARDIS [Concomitant]
  6. PLAVIX [Concomitant]
  7. AGGRENOX [Concomitant]
  8. MEVACOR [Concomitant]
  9. HYDROCHLOROTHIAZIDE [Concomitant]
  10. FOSAMAX [Concomitant]
  11. FOLIC ACID [Concomitant]
  12. PREDNISONE TAB [Concomitant]
  13. VITAMIN E [Concomitant]
  14. VITAMIN C [Concomitant]

REACTIONS (2)
  - FATIGUE [None]
  - SOMNOLENCE [None]
